FAERS Safety Report 5203199-2 (Version None)
Quarter: 2006Q4

REPORT INFORMATION
  Report Type: 
  Country: None (occurrence: None)
  Receive Date: 20061016
  Receipt Date: 20060130
  Transmission Date: 20070319
  Serious: Yes (Other)
  Sender: FDA-Public Use
  Company Number: 2006016300

PATIENT
  Age: 51 Year
  Sex: Male
  Weight: 83.9154 kg

DRUGS (6)
  1. NEURONTIN [Suspect]
     Indication: ARTHRITIS
     Dosage: 900 MG (300 MG, 3 IN 1 D), ORAL
     Route: 048
  2. COZAAR [Concomitant]
  3. FOSAMAX [Concomitant]
  4. PREDNISONE TAB [Concomitant]
  5. ARAVA [Concomitant]
  6. EFFEXOR [Concomitant]

REACTIONS (2)
  - ATRIOVENTRICULAR BLOCK [None]
  - MYOCARDIAL INFARCTION [None]
